FAERS Safety Report 8883013 (Version 1)
Quarter: 2012Q4

REPORT INFORMATION
  Report Type: 
  Country: JP (occurrence: JP)
  Receive Date: 20121103
  Receipt Date: 20121103
  Transmission Date: 20130627
  Serious: Yes (Hospitalization)
  Sender: FDA-Public Use
  Company Number: JP-ACCORD-015078

PATIENT
  Age: 19 Year
  Sex: Female

DRUGS (1)
  1. QUETIAPINE FUMARATE [Suspect]
     Indication: SCHIZOPHRENIA AGGRAVATED
     Dosage: dose increased to 400 mg/d (on day 21), and then 600 mg/d (on day 48)

REACTIONS (2)
  - Insulin resistance [Unknown]
  - Condition aggravated [Unknown]
